FAERS Safety Report 15494624 (Version 4)
Quarter: 2018Q4

REPORT INFORMATION
  Report Type: Report from Study
  Country: MX (occurrence: MX)
  Receive Date: 20181012
  Receipt Date: 20181022
  Transmission Date: 20190205
  Serious: Yes (Other)
  Sender: FDA-Public Use
  Company Number: PHHY2018MX114377

PATIENT
  Age: 75 Year
  Sex: Male
  Weight: 79 kg

DRUGS (4)
  1. METFORMIN [Suspect]
     Active Substance: METFORMIN HYDROCHLORIDE
     Indication: DIABETES MELLITUS
     Dosage: 1 DF, BID (1 IN MORNING, 1 IN NIGHT)
     Route: 048
     Dates: start: 2012
  2. BRUCEN [Concomitant]
     Indication: DIABETES MELLITUS
     Dosage: 1 DF, BID (1 IN MORNING, 1 IN NIGHT)
     Route: 048
     Dates: start: 2012
  3. ENTRESTO [Suspect]
     Active Substance: SACUBITRIL\VALSARTAN
     Indication: CARDIOMEGALY
     Dosage: 0.5 DF (50 MG), QD
     Route: 048
     Dates: start: 20180903
  4. ENTRESTO [Suspect]
     Active Substance: SACUBITRIL\VALSARTAN
     Dosage: 50 MG, QD
     Route: 048
     Dates: start: 20180922

REACTIONS (5)
  - Wrong technique in product usage process [Unknown]
  - Product use in unapproved indication [Unknown]
  - Prescribed underdose [Unknown]
  - Product prescribing error [Unknown]
  - Arrhythmia [Unknown]

NARRATIVE: CASE EVENT DATE: 20180903
